FAERS Safety Report 4571197-8 (Version None)
Quarter: 2005Q1

REPORT INFORMATION
  Report Type: 
  Country: None (occurrence: None)
  Receive Date: 20050202
  Receipt Date: 20050124
  Transmission Date: 20050727
  Serious: Yes (Hospitalization, Disabling, Other)
  Sender: FDA-Public Use
  Company Number: BRO-007728

PATIENT
  Age: 59 Year
  Sex: Female

DRUGS (6)
  1. IOPAMIDOL-300 [Suspect]
     Indication: ARTHROGRAM
     Dosage: 0.5 ML, IR
     Dates: start: 20040804, end: 20040804
  2. XYLOCAINE HYDROCHLORIDE (LIDOCAINE HYDROCHLORIDE) [Concomitant]
     Indication: SPINAL DISORDER
  3. HYDROCORTANCYL (PREDNISOLONE) [Concomitant]
  4. MIGPRIV [Concomitant]
  5. ACETAMINOPHEN [Concomitant]
  6. VIDORA (INDORAMIN) [Concomitant]

REACTIONS (22)
  - ACCIDENT [None]
  - ANGIOPATHY [None]
  - BRADYCARDIA [None]
  - BRAIN STEM SYNDROME [None]
  - CENTRAL NERVOUS SYSTEM LESION [None]
  - CSF TEST ABNORMAL [None]
  - DYSAESTHESIA [None]
  - DYSPNOEA [None]
  - HEMIPARESIS [None]
  - HYPERSENSITIVITY [None]
  - IMMUNE SYSTEM DISORDER [None]
  - IMMUNOGLOBULINS INCREASED [None]
  - LIVER DISORDER [None]
  - LOCALISED OEDEMA [None]
  - MALAISE [None]
  - MYELITIS [None]
  - PAIN [None]
  - QUADRIPLEGIA [None]
  - SPINAL CORD DISORDER [None]
  - SPINAL DISORDER [None]
  - SYNCOPE VASOVAGAL [None]
  - TRANSAMINASES INCREASED [None]
